FAERS Safety Report 8304261-8 (Version None)
Quarter: 2012Q2

REPORT INFORMATION
  Report Type: 
  Country: None (occurrence: None)
  Receive Date: 20120423
  Receipt Date: 20120416
  Transmission Date: 20120825
  Serious: Yes (Other)
  Sender: FDA-Public Use
  Company Number: PHHY2011CA92618

PATIENT
  Sex: Female

DRUGS (1)
  1. GILENYA [Suspect]
     Indication: RELAPSING-REMITTING MULTIPLE SCLEROSIS
     Dosage: 0.5 MG, DAILY
     Route: 048
     Dates: start: 20111005

REACTIONS (11)
  - SLEEP APNOEA SYNDROME [None]
  - SWELLING FACE [None]
  - OEDEMA PERIPHERAL [None]
  - SPEECH DISORDER [None]
  - BLOOD PRESSURE INCREASED [None]
  - GINGIVAL SWELLING [None]
  - GINGIVAL PAIN [None]
  - BLADDER DISORDER [None]
  - MUSCULOSKELETAL PAIN [None]
  - EYELID OEDEMA [None]
  - EATING DISORDER [None]
